FAERS Safety Report 5678712-1 (Version None)
Quarter: 2008Q1

REPORT INFORMATION
  Report Type: 
  Country: None (occurrence: None)
  Receive Date: 20080321
  Receipt Date: 20080305
  Transmission Date: 20080703
  Serious: No
  Sender: FDA-Public Use
  Company Number: US022909

PATIENT
  Age: 53 Year
  Sex: Female
  Weight: 113.3993 kg

DRUGS (4)
  1. FENTORA [Suspect]
     Indication: PAIN
     Dosage: 600 UG ONCE BUCCAL
     Route: 002
  2. FENTANYL [Concomitant]
  3. LEVOTHYROXINE SODIUM [Concomitant]
  4. PROVIGIL [Concomitant]

REACTIONS (1)
  - DRUG PRESCRIBING ERROR [None]
